FAERS Safety Report 16485920 (Version 4)
Quarter: 2020Q2

REPORT INFORMATION
  Report Type: Report from Study
  Country: US (occurrence: US)
  Receive Date: 20190627
  Receipt Date: 20200414
  Transmission Date: 20200713
  Serious: Yes (Other)
  Sender: FDA-Public Use
  Company Number: PHEH2019US026518

PATIENT
  Age: 69 Year
  Sex: Female

DRUGS (3)
  1. ENTRESTO [Suspect]
     Active Substance: SACUBITRIL\VALSARTAN
     Indication: CARDIAC FAILURE CHRONIC
     Dosage: 24 MG, BID
     Route: 048
     Dates: start: 201905
  2. ENTRESTO [Suspect]
     Active Substance: SACUBITRIL\VALSARTAN
     Indication: CARDIAC FAILURE
  3. ENTRESTO [Suspect]
     Active Substance: SACUBITRIL\VALSARTAN
     Indication: CARDIAC FAILURE CONGESTIVE
     Dosage: UNK
     Route: 048

REACTIONS (16)
  - Headache [Unknown]
  - Asthenia [Unknown]
  - Dysphonia [Not Recovered/Not Resolved]
  - Nausea [Unknown]
  - Renal impairment [Recovered/Resolved]
  - Weight fluctuation [Unknown]
  - Palpitations [Unknown]
  - Dizziness [Recovering/Resolving]
  - Incorrect dose administered [Unknown]
  - Sinus disorder [Unknown]
  - Cough [Not Recovered/Not Resolved]
  - Hypotension [Recovering/Resolving]
  - Blood potassium decreased [Unknown]
  - Dyspnoea [Unknown]
  - Viral infection [Unknown]
  - Depression [Unknown]

NARRATIVE: CASE EVENT DATE: 201902
